FAERS Safety Report 7522997-3 (Version None)
Quarter: 2011Q2

REPORT INFORMATION
  Report Type: 
  Country: None (occurrence: None)
  Receive Date: 20110603
  Receipt Date: 20110523
  Transmission Date: 20111010
  Serious: Yes (Hospitalization, Disabling, Other)
  Sender: FDA-Public Use
  Company Number: US-MERCK-1102USA00333

PATIENT
  Age: 62 Year
  Sex: Female
  Weight: 84 kg

DRUGS (25)
  1. FOSAMAX [Suspect]
     Indication: OSTEOPOROSIS
     Route: 048
     Dates: start: 20030101, end: 20051201
  2. VITAMINS (UNSPECIFIED) [Concomitant]
     Route: 065
     Dates: start: 19980101
  3. IRON (UNSPECIFIED) AND VITAMINS (UNSPECIFIED) [Concomitant]
     Route: 065
  4. TRAMADOL HYDROCHLORIDE [Concomitant]
     Route: 065
  5. CALCIUM (UNSPECIFIED) AND VITAMIN D (UNSPECIFIED) [Concomitant]
     Route: 065
     Dates: start: 19980101
  6. HYDROCHLOROTHIAZIDE [Concomitant]
     Route: 048
  7. LISINOPRIL AND HYDROCHLOROTHIAZIDE [Concomitant]
     Route: 048
  8. SYNTHROID [Concomitant]
     Indication: HYPOTHYROIDISM
     Route: 048
     Dates: end: 20070101
  9. OS-CAL + D [Concomitant]
     Route: 065
  10. KLONOPIN [Concomitant]
     Route: 065
  11. PRAVACHOL [Concomitant]
     Route: 065
  12. VIOXX [Concomitant]
     Route: 048
     Dates: end: 20050101
  13. FOSAMAX [Suspect]
     Route: 048
     Dates: start: 20060601, end: 20070101
  14. FOSAMAX [Suspect]
     Route: 048
     Dates: start: 20080101, end: 20100101
  15. COUMADIN [Concomitant]
     Route: 065
  16. LISINOPRIL [Concomitant]
     Route: 065
  17. OMEGA-3 MARINE TRIGLYCERIDES [Concomitant]
     Route: 065
  18. PAXIL CR [Concomitant]
     Route: 048
     Dates: start: 20030311
  19. ASPIRIN [Concomitant]
     Route: 065
  20. LORTAB [Concomitant]
     Route: 065
  21. ALBUTEROL [Concomitant]
     Route: 055
  22. VICODIN [Concomitant]
     Route: 065
  23. VITAMIN D (UNSPECIFIED) [Concomitant]
     Route: 048
  24. GASTROINTESTINAL PREPARATIONS (UNSPECIFIED) [Concomitant]
     Route: 065
  25. CALCIUM (UNSPECIFIED) [Concomitant]
     Route: 065

REACTIONS (26)
  - JOINT LOCK [None]
  - GASTROOESOPHAGEAL REFLUX DISEASE [None]
  - FEMUR FRACTURE [None]
  - ARTHRITIS [None]
  - HYPERTENSION [None]
  - CHEST PAIN [None]
  - OSTEOPOROSIS [None]
  - CONVULSION [None]
  - OSTEOARTHRITIS [None]
  - FALL [None]
  - PAIN [None]
  - BLOOD POTASSIUM DECREASED [None]
  - STRESS FRACTURE [None]
  - ABASIA [None]
  - RADICULOPATHY [None]
  - MYOCARDIAL ISCHAEMIA [None]
  - MUSCULAR WEAKNESS [None]
  - BLOOD THYROID STIMULATING HORMONE INCREASED [None]
  - LUNG DISORDER [None]
  - WRIST FRACTURE [None]
  - LOW TURNOVER OSTEOPATHY [None]
  - BONE LOSS [None]
  - ANXIETY [None]
  - BACK PAIN [None]
  - SCOLIOSIS [None]
  - BLOOD THYROID STIMULATING HORMONE DECREASED [None]
